FAERS Safety Report 8089047-4 (Version None)
Quarter: 2012Q1

REPORT INFORMATION
  Report Type: 
  Country: None (occurrence: None)
  Receive Date: 20120128
  Receipt Date: 20110722
  Transmission Date: 20120608
  Serious: No
  Sender: FDA-Public Use
  Company Number: PR-ABBOTT-11P-131-0834485-00

PATIENT
  Sex: Female
  Weight: 78.996 kg

DRUGS (4)
  1. HUMIRA [Suspect]
     Indication: PSORIATIC ARTHROPATHY
  2. SULINDAC [Concomitant]
     Indication: PSORIATIC ARTHROPATHY
  3. SULINDAC [Concomitant]
     Indication: ANKYLOSING SPONDYLITIS
     Route: 048
  4. HUMIRA [Suspect]
     Indication: ANKYLOSING SPONDYLITIS
     Route: 058
     Dates: start: 20110315

REACTIONS (4)
  - DRUG INEFFECTIVE [None]
  - ABASIA [None]
  - WEIGHT INCREASED [None]
  - INFLAMMATION [None]
